FAERS Safety Report 9027715 (Version 1)
Quarter: 2013Q1

REPORT INFORMATION
  Report Type: Spontaneous
  Country: GB (occurrence: GB)
  Receive Date: 20130124
  Receipt Date: 20130124
  Transmission Date: 20140127
  Serious: Yes (Disabling)
  Sender: FDA-Public Use
  Company Number: GB-009507513-1301GBR010464

PATIENT
  Age: 51 Year
  Sex: Female
  Weight: 115.7 kg

DRUGS (8)
  1. SITAGLIPTIN PHOSPHATE [Suspect]
     Indication: TYPE 2 DIABETES MELLITUS
     Dosage: 100 MG, UNK
     Route: 048
     Dates: start: 20120822, end: 20121123
  2. AMITRIPTYLINE HYDROCHLORIDE [Concomitant]
     Dosage: 30 MG, QD
  3. HUMALOG [Concomitant]
     Dosage: UNK, BID
  4. LANSOPRAZOLE [Concomitant]
     Dosage: 30 MG, QD
  5. METFORMIN [Concomitant]
     Dosage: 1 G, BID
  6. SALAMOL [Concomitant]
     Dosage: INHALATION USE
     Route: 055
  7. ALBUTEROL [Concomitant]
     Dosage: INHALATION USE
     Route: 055
  8. SIMVASTATIN [Concomitant]
     Dosage: 40 MG, QD

REACTIONS (3)
  - Discomfort [Recovered/Resolved]
  - Parotitis [Recovered/Resolved]
  - Malaise [Recovered/Resolved]
